FAERS Safety Report 6146457-X (Version None)
Quarter: 2009Q2

REPORT INFORMATION
  Report Type: 
  Country: None (occurrence: None)
  Receive Date: 20090407
  Receipt Date: 20090331
  Transmission Date: 20091009
  Serious: Yes (Hospitalization)
  Sender: FDA-Public Use
  Company Number: A0776169A

PATIENT
  Age: 55 Year
  Sex: Male

DRUGS (8)
  1. LAMICTAL [Suspect]
     Indication: POST-TRAUMATIC STRESS DISORDER
     Dosage: 300MG PER DAY
     Route: 048
     Dates: start: 20050101
  2. COREG [Suspect]
     Route: 048
     Dates: start: 20090316
  3. STEROIDS [Suspect]
     Indication: DRUG USE FOR UNKNOWN INDICATION
  4. GLUCOTROL [Concomitant]
  5. GLUCOPHAGE [Concomitant]
  6. SEROQUEL [Concomitant]
  7. PERCOCET [Concomitant]
  8. VALIUM [Concomitant]

REACTIONS (10)
  - COGNITIVE DISORDER [None]
  - CONFUSIONAL STATE [None]
  - DRUG INEFFECTIVE [None]
  - DRUG INTERACTION [None]
  - HALLUCINATION [None]
  - MANIA [None]
  - PNEUMONIA [None]
  - POST-TRAUMATIC STRESS DISORDER [None]
  - PSYCHOTIC DISORDER [None]
  - THERAPEUTIC RESPONSE UNEXPECTED [None]
